FAERS Safety Report 7102440-9 (Version None)
Quarter: 2010Q4

REPORT INFORMATION
  Report Type: 
  Country: None (occurrence: None)
  Receive Date: 20101115
  Receipt Date: 20101108
  Transmission Date: 20110411
  Serious: No
  Sender: FDA-Public Use
  Company Number: US-BIOGENIDEC-2010BI038814

PATIENT
  Age: 37 Year
  Sex: Male

DRUGS (1)
  1. AVONEX [Suspect]
     Indication: MULTIPLE SCLEROSIS
     Route: 030
     Dates: start: 20101104

REACTIONS (5)
  - BLINDNESS [None]
  - EYELID FUNCTION DISORDER [None]
  - FEELING COLD [None]
  - GENERAL SYMPTOM [None]
  - MIGRAINE [None]
